FAERS Safety Report 9374562 (Version 1)
Quarter: 2013Q2

REPORT INFORMATION
  Report Type: Spontaneous
  Country: DE (occurrence: DE)
  Receive Date: 20130628
  Receipt Date: 20130628
  Transmission Date: 20140414
  Serious: Yes (Hospitalization, Other)
  Sender: FDA-Public Use
  Company Number: DE-AMGEN-DEUSP2013045568

PATIENT
  Age: 82 Year
  Sex: Female

DRUGS (2)
  1. ENBREL [Suspect]
     Indication: RHEUMATOID ARTHRITIS
     Dosage: 50 MG, WEEKLY
     Route: 065
     Dates: start: 20130404, end: 20130505
  2. PREDNISOLONE [Concomitant]
     Dosage: 5 MG, DAILY

REACTIONS (3)
  - Ovarian cancer [Unknown]
  - Gastrointestinal carcinoma [Unknown]
  - Uterine cancer [Unknown]
